FAERS Safety Report 20619982 (Version 2)
Quarter: 2022Q2

REPORT INFORMATION
  Report Type: Report from Study
  Country: DE (occurrence: None)
  Receive Date: 20220322
  Receipt Date: 20220411
  Transmission Date: 20220721
  Serious: Yes (Life-Threatening)
  Sender: FDA-Public Use
  Company Number: DE-ROCHE-3049626

PATIENT
  Age: 55 Year
  Sex: Female
  Weight: 62 kg

DRUGS (3)
  1. ATEZOLIZUMAB [Suspect]
     Active Substance: ATEZOLIZUMAB
     Indication: Triple negative breast cancer
     Dosage: ON 17/JAN/2022, SHE HAD LAST DOSE PRIOR TO SERIOUS ADVERSE EVENT.
     Route: 041
     Dates: start: 20220117
  2. PACLITAXEL [Suspect]
     Active Substance: PACLITAXEL
     Indication: Triple negative breast cancer
     Dosage: ON 24/JAN/2022, SHE HAD LAST DOSE PRIOR TO SERIOUS ADVERSE EVENT.
     Route: 042
     Dates: start: 20220117
  3. CARBOPLATIN [Suspect]
     Active Substance: CARBOPLATIN
     Indication: Triple negative breast cancer
     Dosage: ON 17/JAN/2022, SHE HAD LAST DOSE PRIOR TO SERIOUS ADVERSE EVENT.
     Route: 042
     Dates: start: 20220117

REACTIONS (1)
  - Visual acuity reduced [Recovered/Resolved]

NARRATIVE: CASE EVENT DATE: 20220129
